FAERS Safety Report 18315963 (Version 1)
Quarter: 2020Q3

REPORT INFORMATION
  Report Type: Other
  Country: CA (occurrence: CA)
  Receive Date: 20200927
  Receipt Date: 20200927
  Transmission Date: 20201103
  Serious: Yes (Other)
  Sender: FDA-Public Use
  Company Number: CA-CELLTRION INC.-2020CA026962

PATIENT

DRUGS (26)
  1. DIPHENHYDRAMINE HYDROCHLORIDE. [Concomitant]
     Active Substance: DIPHENHYDRAMINE HYDROCHLORIDE
     Indication: PREMEDICATION
     Dosage: 50.0 MILLIGRAM
     Route: 048
  2. WARFARIN [Concomitant]
     Active Substance: WARFARIN
  3. LACTULOSE. [Concomitant]
     Active Substance: LACTULOSE
     Route: 065
  4. LEVOCARB [Concomitant]
     Active Substance: CARBIDOPA\LEVODOPA
  5. OXYCODONE [Concomitant]
     Active Substance: OXYCODONE
  6. PAROXETINE. [Concomitant]
     Active Substance: PAROXETINE
  7. PLAQUENIL [Concomitant]
     Active Substance: HYDROXYCHLOROQUINE SULFATE
  8. RITUXIMAB (UNKNOWN) [Suspect]
     Active Substance: RITUXIMAB
     Indication: RHEUMATOID ARTHRITIS
     Dosage: 1000.0 MILLIGRAM
     Route: 042
  9. FOLIC ACID. [Concomitant]
     Active Substance: FOLIC ACID
  10. METHOTREXATE. [Concomitant]
     Active Substance: METHOTREXATE
  11. OXYNEO [Concomitant]
     Active Substance: OXYCODONE
  12. PANTOPRAZOLE [Concomitant]
     Active Substance: PANTOPRAZOLE
  13. BISOPROLOL [Concomitant]
     Active Substance: BISOPROLOL
  14. DOCUSATE SODIUM. [Concomitant]
     Active Substance: DOCUSATE SODIUM
  15. ELTROXIN [Concomitant]
     Active Substance: LEVOTHYROXINE
  16. METHYLPREDNISOLONE. [Concomitant]
     Active Substance: METHYLPREDNISOLONE
     Indication: PREMEDICATION
     Dosage: 100.0 MILLIGRAM
     Route: 042
  17. METOPROLOL. [Concomitant]
     Active Substance: METOPROLOL
  18. ROSUVASTATIN. [Concomitant]
     Active Substance: ROSUVASTATIN
  19. SPIROTONE [Concomitant]
  20. SPIRONOLACTONE. [Concomitant]
     Active Substance: SPIRONOLACTONE
  21. ACTONEL [Concomitant]
     Active Substance: RISEDRONATE SODIUM
  22. DOXYCYCLINE. [Concomitant]
     Active Substance: DOXYCYCLINE
     Route: 065
  23. PAXIL [Concomitant]
     Active Substance: PAROXETINE HYDROCHLORIDE
  24. SINEMET [Concomitant]
     Active Substance: CARBIDOPA\LEVODOPA
  25. FLECAINIDE [Concomitant]
     Active Substance: FLECAINIDE
  26. VITAMIN C [Concomitant]
     Active Substance: ASCORBIC ACID

REACTIONS (11)
  - Oxygen saturation decreased [Not Recovered/Not Resolved]
  - Parkinson^s disease [Not Recovered/Not Resolved]
  - Heart rate decreased [Not Recovered/Not Resolved]
  - Insomnia [Not Recovered/Not Resolved]
  - Arthritis [Not Recovered/Not Resolved]
  - Blood pressure diastolic abnormal [Not Recovered/Not Resolved]
  - Body temperature decreased [Not Recovered/Not Resolved]
  - Hypotension [Not Recovered/Not Resolved]
  - Blood pressure diastolic decreased [Not Recovered/Not Resolved]
  - Bronchitis [Not Recovered/Not Resolved]
  - Nasopharyngitis [Not Recovered/Not Resolved]
